FAERS Safety Report 25177933 (Version 1)
Quarter: 2025Q2

REPORT INFORMATION
  Report Type: Spontaneous
  Country: US (occurrence: US)
  Receive Date: 20250409
  Receipt Date: 20250409
  Transmission Date: 20250716
  Serious: Yes (Other)
  Sender: MYLAN
  Company Number: US-MYLANLABS-2025M1030054

PATIENT
  Age: 71 Year
  Sex: Female

DRUGS (9)
  1. PREDNISONE [Suspect]
     Active Substance: PREDNISONE
     Indication: Colitis ulcerative
  2. PREDNISONE [Suspect]
     Active Substance: PREDNISONE
     Indication: Squamous cell carcinoma of skin
  3. PREDNISONE [Suspect]
     Active Substance: PREDNISONE
     Indication: Paradoxical drug reaction
  4. ACITRETIN [Suspect]
     Active Substance: ACITRETIN
     Indication: Squamous cell carcinoma of skin
  5. ACITRETIN [Suspect]
     Active Substance: ACITRETIN
     Indication: Paradoxical drug reaction
  6. FLUOROURACIL [Suspect]
     Active Substance: FLUOROURACIL
     Indication: Actinic keratosis
     Dosage: UNK, BID (FOR 21?DAYS)
  7. AZATHIOPRINE [Suspect]
     Active Substance: AZATHIOPRINE
     Indication: Colitis ulcerative
  8. FLUOROURACIL [Suspect]
     Active Substance: FLUOROURACIL
     Indication: Squamous cell carcinoma of skin
  9. FLUOROURACIL [Suspect]
     Active Substance: FLUOROURACIL
     Indication: Paradoxical drug reaction

REACTIONS (4)
  - Squamous cell carcinoma of skin [Not Recovered/Not Resolved]
  - Paradoxical drug reaction [Not Recovered/Not Resolved]
  - Drug ineffective [Unknown]
  - Off label use [Unknown]
